FAERS Safety Report 10161823 (Version 1)
Quarter: 2014Q2

REPORT INFORMATION
  Report Type: Spontaneous
  Country: BE (occurrence: None)
  Receive Date: 20140507
  Receipt Date: 20140507
  Transmission Date: 20141212
  Serious: Yes (Hospitalization)
  Sender: FDA-Public Use
  Company Number: BE-DEXPHARM-20140201

PATIENT
  Age: 61 Year
  Sex: Female

DRUGS (8)
  1. VOLTAREN [Suspect]
     Indication: PROCEDURAL PAIN
  2. FENOGAL LIDOSE [Concomitant]
  3. MANIPREX [Concomitant]
  4. NOVOMIX [Concomitant]
  5. SERTALINE EG [Concomitant]
  6. TEMESTA [Concomitant]
  7. TRAZODONE MYLAN [Concomitant]
  8. ZYPREXA [Concomitant]

REACTIONS (10)
  - Drug interaction [None]
  - Hypoglycaemia [None]
  - Toxicity to various agents [None]
  - Renal failure acute [None]
  - Agitation [None]
  - Dehydration [None]
  - Restlessness [None]
  - Hypercalcaemia [None]
  - Hyperglycaemia [None]
  - Loss of consciousness [None]
